FAERS Safety Report 17750455 (Version 1)
Quarter: 2020Q2

REPORT INFORMATION
  Report Type: Spontaneous
  Country: US (occurrence: US)
  Receive Date: 20200505
  Receipt Date: 20200505
  Transmission Date: 20200714
  Serious: Yes (Death)
  Sender: FDA-Public Use
  Company Number: None

PATIENT
  Age: 73 Year
  Sex: Male

DRUGS (13)
  1. FUROSEMIDE. [Concomitant]
     Active Substance: FUROSEMIDE
  2. ELIQUIS [Concomitant]
     Active Substance: APIXABAN
  3. HYDROCO APAP [Concomitant]
  4. ALPRAZOLAM. [Concomitant]
     Active Substance: ALPRAZOLAM
  5. TECENTRIQ [Suspect]
     Active Substance: ATEZOLIZUMAB
     Indication: LUNG CARCINOMA CELL TYPE UNSPECIFIED STAGE 0
     Dosage: ?        FREQUENCY: Q21DAYS?
     Route: 042
     Dates: start: 20191120
  6. CARVEDILOL. [Concomitant]
     Active Substance: CARVEDILOL
  7. ATORVASTATIN [Concomitant]
     Active Substance: ATORVASTATIN
  8. RAMPRIL [Concomitant]
     Active Substance: RAMIPRIL
  9. BUMETANIDE. [Concomitant]
     Active Substance: BUMETANIDE
  10. DOK [Concomitant]
     Active Substance: DOCUSATE SODIUM
  11. TRIAMCINOLON [Concomitant]
  12. MEGESTEROL [Concomitant]
  13. SPIRONOLACT [Concomitant]
     Active Substance: SPIRONOLACTONE

REACTIONS (1)
  - Death [None]

NARRATIVE: CASE EVENT DATE: 20200417
